FAERS Safety Report 7523794-5 (Version None)
Quarter: 2011Q2

REPORT INFORMATION
  Report Type: 
  Country: None (occurrence: None)
  Receive Date: 20110603
  Receipt Date: 20110525
  Transmission Date: 20111010
  Serious: Yes (Hospitalization)
  Sender: FDA-Public Use
  Company Number: GB-ASTRAZENECA-2011SE32224

PATIENT
  Sex: Female

DRUGS (8)
  1. MEROPENEM [Suspect]
     Route: 042
  2. FUROSEMIDE [Suspect]
     Route: 042
  3. ACETAMINOPHEN [Suspect]
     Route: 042
  4. VANCOMYCIN [Suspect]
     Route: 042
  5. PROPOFOL [Suspect]
     Route: 042
  6. NORADRENALIN [Suspect]
     Route: 042
  7. PHOSPHATE ION [Suspect]
     Route: 042
  8. PHENTOLAMINE MESYLATE [Suspect]
     Route: 042

REACTIONS (4)
  - DEVICE RELATED SEPSIS [None]
  - ABDOMINAL SEPSIS [None]
  - HYPERTENSION [None]
  - OEDEMA [None]
